FAERS Safety Report 6405747-3 (Version None)
Quarter: 2009Q4

REPORT INFORMATION
  Report Type: 
  Country: None (occurrence: None)
  Receive Date: 20091019
  Receipt Date: 20091008
  Transmission Date: 20100525
  Serious: Yes (Hospitalization)
  Sender: FDA-Public Use
  Company Number: FI-JNJFOC-20091004106

PATIENT
  Age: 22 Year
  Sex: Male

DRUGS (6)
  1. REMICADE [Suspect]
     Indication: CROHN'S DISEASE
     Route: 042
  2. REMICADE [Suspect]
     Indication: COLITIS ULCERATIVE
     Route: 042
  3. LEPONEX [Concomitant]
     Indication: CROHN'S DISEASE
  4. LEPONEX [Concomitant]
     Indication: COLITIS ULCERATIVE
  5. CORTISONE [Concomitant]
     Indication: CROHN'S DISEASE
  6. CORTISONE [Concomitant]
     Indication: COLITIS ULCERATIVE

REACTIONS (2)
  - NERVE INJURY [None]
  - VISUAL IMPAIRMENT [None]
